FAERS Safety Report 6242680-4 (Version None)
Quarter: 2009Q2

REPORT INFORMATION
  Report Type: 
  Country: None (occurrence: None)
  Receive Date: 20090617
  Receipt Date: 20071016
  Transmission Date: 20091009
  Serious: No
  Sender: FDA-Public Use
  Company Number: 268670

PATIENT
  Age: 85 Year
  Sex: Female

DRUGS (1)
  1. LEVEMIR [Suspect]
     Indication: TYPE 1 DIABETES MELLITUS
     Dosage: SUBCUTANEOUS
     Route: 058
     Dates: start: 20061201

REACTIONS (5)
  - CARDIAC DISCOMFORT [None]
  - DEVICE FAILURE [None]
  - DYSPNOEA [None]
  - INJECTION SITE HAEMORRHAGE [None]
  - PALPITATIONS [None]
